FAERS Safety Report 8772650 (Version 2)
Quarter: 2012Q4

REPORT INFORMATION
  Report Type: 
  Country: US (occurrence: US)
  Receive Date: 20120904
  Receipt Date: 20120917
  Transmission Date: 20130627
  Serious: Yes (Other)
  Sender: FDA-Public Use
  Company Number: US-PFIZER INC-2012215248

PATIENT
  Age: 62 Year
  Sex: Female
  Weight: 56.69 kg

DRUGS (4)
  1. PRISTIQ [Suspect]
     Indication: DEPRESSION
     Dosage: 200 mg (2 tablets of 100mg), 1x/day
     Route: 048
  2. PRISTIQ [Suspect]
     Indication: ANXIETY
     Dosage: 100 mg, 1x/day
     Route: 048
     Dates: end: 201207
  3. PRISTIQ [Suspect]
     Dosage: UNK
     Route: 048
     Dates: start: 2012
  4. LISINOPRIL [Concomitant]
     Indication: HYPERTENSION
     Dosage: UNK

REACTIONS (12)
  - Withdrawal syndrome [Unknown]
  - Drug dependence [Unknown]
  - Balance disorder [Recovered/Resolved]
  - Activities of daily living impaired [Unknown]
  - Drug ineffective [Unknown]
  - Crying [Unknown]
  - Mood swings [Unknown]
  - Fear [Unknown]
  - Diarrhoea [Unknown]
  - Vomiting [Unknown]
  - Nausea [Recovered/Resolved]
  - Malaise [Unknown]
